FAERS Safety Report 17699050 (Version 1)
Quarter: 2020Q2

REPORT INFORMATION
  Report Type: Spontaneous
  Country: US (occurrence: US)
  Receive Date: 20200422
  Receipt Date: 20200422
  Transmission Date: 20200714
  Serious: No
  Sender: FDA-Public Use
  Company Number: None

PATIENT
  Sex: Male

DRUGS (1)
  1. METHOTREXATE MDV (2ML/VL) 25MG/ML NOVAPLUS/HOSPIRA [Suspect]
     Active Substance: METHOTREXATE
     Indication: POLYARTHRITIS
     Route: 058
     Dates: start: 20190205

REACTIONS (2)
  - Therapy interrupted [None]
  - Platelet disorder [None]
